FAERS Safety Report 12345111 (Version 2)
Quarter: 2016Q2

REPORT INFORMATION
  Report Type: Spontaneous
  Country: US (occurrence: US)
  Receive Date: 20160507
  Receipt Date: 20160610
  Transmission Date: 20160815
  Serious: Yes (Hospitalization)
  Sender: FDA-Public Use
  Company Number: US-JNJFOC-20160424304

PATIENT
  Age: 74 Year
  Sex: Male

DRUGS (1)
  1. XARELTO [Suspect]
     Active Substance: RIVAROXABAN
     Indication: DEEP VEIN THROMBOSIS
     Route: 048
     Dates: start: 20151017, end: 20151101

REACTIONS (3)
  - Gastrointestinal haemorrhage [Unknown]
  - Thrombosis [Unknown]
  - Haematuria [Unknown]

NARRATIVE: CASE EVENT DATE: 20151112
